FAERS Safety Report 10917998 (Version 1)
Quarter: 2015Q1

REPORT INFORMATION
  Report Type: Report from Study
  Country: EG (occurrence: EG)
  Receive Date: 20150316
  Receipt Date: 20150316
  Transmission Date: 20150721
  Serious: Yes (Death)
  Sender: FDA-Public Use
  Company Number: EG-SA-2015SA032305

PATIENT

DRUGS (1)
  1. DOCETAXEL. [Suspect]
     Active Substance: DOCETAXEL
     Route: 065
     Dates: end: 20150103

REACTIONS (1)
  - Diarrhoea [Fatal]

NARRATIVE: CASE EVENT DATE: 20150105
